FAERS Safety Report 7951696-9 (Version None)
Quarter: 2011Q4

REPORT INFORMATION
  Report Type: 
  Country: None (occurrence: None)
  Receive Date: 20111110
  Receipt Date: 20111110
  Transmission Date: 20120403
  Serious: Yes (Other)
  Sender: FDA-Public Use
  Company Number: None

PATIENT
  Age: 61 Year
  Sex: Male
  Weight: 77.1115 kg

DRUGS (1)
  1. LISTERINE WHITENING UNSPECIFIED (ORAL CARE PRODUCTS) UNSPECIFIED [Suspect]
     Indication: DENTAL CARE
     Dosage: , 1 IN 1 DAY, ORAL
     Route: 048
     Dates: start: 20110801

REACTIONS (1)
  - MOUTH ULCERATION [None]
